FAERS Safety Report 4514944-3 (Version None)
Quarter: 2004Q4

REPORT INFORMATION
  Report Type: 
  Country: None (occurrence: None)
  Receive Date: 20041201
  Receipt Date: 20041115
  Transmission Date: 20050328
  Serious: Yes (Hospitalization)
  Sender: FDA-Public Use
  Company Number: 200414279FR

PATIENT
  Age: 69 Year
  Sex: Female

DRUGS (7)
  1. LOVENOX [Suspect]
     Route: 058
  2. PRIMPERAN [Suspect]
     Route: 048
  3. SKENAN [Suspect]
     Route: 048
  4. EFFEXOR [Suspect]
     Route: 048
  5. TRACLEER [Suspect]
     Indication: PULMONARY HYPERTENSION
     Route: 048
     Dates: start: 20040128
  6. OMEPRAZOLE [Suspect]
     Route: 048
  7. MOVICOL [Suspect]

REACTIONS (2)
  - CONDITION AGGRAVATED [None]
  - PULMONARY HYPERTENSION [None]
